FAERS Safety Report 10524244 (Version 1)
Quarter: 2014Q4

REPORT INFORMATION
  Report Type: Report from Study
  Country: US (occurrence: US)
  Receive Date: 20141017
  Receipt Date: 20141017
  Transmission Date: 20150528
  Serious: Yes (Other)
  Sender: FDA-Public Use
  Company Number: US-JNJFOC-20141009643

PATIENT
  Age: 39 Year
  Sex: Female

DRUGS (2)
  1. NUCYNTA [Suspect]
     Active Substance: TAPENTADOL HYDROCHLORIDE
     Indication: PRODUCT USED FOR UNKNOWN INDICATION
     Dosage: DOSE:50X4 TABLETS
     Route: 048
  2. NUCYNTA ER [Suspect]
     Active Substance: TAPENTADOL HYDROCHLORIDE
     Indication: PRODUCT USED FOR UNKNOWN INDICATION
     Dosage: DOSE:150X5 TABLETS
     Route: 048

REACTIONS (5)
  - Fatigue [Unknown]
  - Suicide attempt [Unknown]
  - Emotional disorder [Unknown]
  - Overdose [Unknown]
  - Somnolence [Unknown]
